FAERS Safety Report 7784701-3 (Version None)
Quarter: 2011Q3

REPORT INFORMATION
  Report Type: 
  Country: None (occurrence: None)
  Receive Date: 20110928
  Receipt Date: 20110627
  Transmission Date: 20111222
  Serious: No
  Sender: FDA-Public Use
  Company Number: US-BAYER-2011-066502

PATIENT
  Sex: Female

DRUGS (6)
  1. TOPAMAX [Concomitant]
     Indication: HEADACHE
     Dosage: 2 TABLETS
     Route: 048
  2. ALEVE (CAPLET) [Suspect]
     Indication: MIGRAINE
     Dosage: 1 TABLET
     Route: 048
  3. LORTAB [Concomitant]
     Indication: HEADACHE
     Dosage: 10, 1 TABLET
     Route: 048
  4. ACETAMINOPHEN [Concomitant]
     Indication: HEADACHE
     Dosage: 500, 2 TABLETS
     Route: 048
  5. IBUPROFEN [Concomitant]
     Indication: HEADACHE
     Dosage: 800, 2 TABLET
     Route: 048
  6. TRAMADOL [Concomitant]
     Indication: HEADACHE
     Dosage: 50 MG, 1 TABLET
     Route: 048

REACTIONS (1)
  - MIGRAINE [None]
